FAERS Safety Report 7730166 (Version 2)
Quarter: 2014Q2

REPORT INFORMATION
  Report Type: Spontaneous
  Country: US (occurrence: US)
  Receive Date: 20101222
  Receipt Date: 20140507
  Transmission Date: 20141212
  Serious: Yes (Hospitalization, Other)
  Sender: FDA-Public Use
  Company Number: US-ROCHE-727343

PATIENT
  Age: 21 Year
  Sex: Male
  Weight: 81.6 kg

DRUGS (2)
  1. ACCUTANE [Suspect]
     Indication: ACNE
     Route: 065
     Dates: start: 199001, end: 199012
  2. ACCUTANE [Suspect]
     Route: 065
     Dates: start: 19910617, end: 199110

REACTIONS (10)
  - Crohn^s disease [Unknown]
  - Small intestinal obstruction [Unknown]
  - Gastrointestinal injury [Unknown]
  - Large intestine polyp [Unknown]
  - Inflammatory bowel disease [Unknown]
  - Depression [Unknown]
  - Blood glucose increased [Unknown]
  - Blood triglycerides increased [Unknown]
  - Osteopenia [Unknown]
  - Iron deficiency anaemia [Unknown]
